FAERS Safety Report 18645965 (Version 1)
Quarter: 2020Q4

REPORT INFORMATION
  Report Type: Other
  Country: CA (occurrence: CA)
  Receive Date: 20201222
  Receipt Date: 20201222
  Transmission Date: 20210114
  Serious: Yes (Other)
  Sender: FDA-Public Use
  Company Number: CA-CELLTRION INC.-2020CA033971

PATIENT

DRUGS (10)
  1. RITUXIMAB (UNKNOWN) [Suspect]
     Active Substance: RITUXIMAB
     Indication: PEMPHIGUS
     Dosage: 1000.0 MG
     Route: 042
  2. METHYLPREDNISOLONE SODIUM SUCCINATE. [Suspect]
     Active Substance: METHYLPREDNISOLONE SODIUM SUCCINATE
     Indication: PREMEDICATION
     Dosage: 100.0 MG
     Route: 042
  3. VITAMIN B6 [Concomitant]
     Active Substance: PYRIDOXINE HYDROCHLORIDE
  4. DIPHENHYDRAMINE. [Suspect]
     Active Substance: DIPHENHYDRAMINE
     Indication: PREMEDICATION
     Dosage: 50.0 MG
     Route: 048
  5. IMURAN [Concomitant]
     Active Substance: AZATHIOPRINE
  6. SILVER SULFADIAZINE. [Concomitant]
     Active Substance: SILVER SULFADIAZINE
  7. TYLENOL [Concomitant]
     Active Substance: ACETAMINOPHEN
  8. ACETAMINOPHEN. [Suspect]
     Active Substance: ACETAMINOPHEN
     Indication: PREMEDICATION
     Dosage: 650.0 MG
     Route: 048
  9. PREDNISONE. [Concomitant]
     Active Substance: PREDNISONE
     Dosage: 50.0 MG
     Route: 065
  10. VITAMIN D3 [Concomitant]
     Active Substance: CHOLECALCIFEROL

REACTIONS (2)
  - Blood cholesterol increased [Unknown]
  - Infusion related reaction [Unknown]
